FAERS Safety Report 6261444-9 (Version None)
Quarter: 2009Q3

REPORT INFORMATION
  Report Type: 
  Country: None (occurrence: None)
  Receive Date: 20090709
  Receipt Date: 20090707
  Transmission Date: 20100115
  Serious: Yes (Death)
  Sender: FDA-Public Use
  Company Number: IT-WYE-H10022909

PATIENT
  Sex: Female
  Weight: 44 kg

DRUGS (1)
  1. GEMTUZUMAB OZOGAMICIN [Suspect]
     Indication: ACUTE MYELOID LEUKAEMIA
     Dosage: 4.5 ACTUAL DOSE GIVEN
     Dates: start: 20090323, end: 20090608

REACTIONS (2)
  - CEREBRAL ARTERY THROMBOSIS [None]
  - RENAL FAILURE ACUTE [None]
